FAERS Safety Report 23151141 (Version 3)
Quarter: 2023Q4

REPORT INFORMATION
  Report Type: Spontaneous
  Country: DE (occurrence: DE)
  Receive Date: 20231106
  Receipt Date: 20231130
  Transmission Date: 20240109
  Serious: Yes (Hospitalization, Other)
  Sender: FDA-Public Use
  Company Number: DE-ABBVIE-5478886

PATIENT
  Age: 48 Year
  Sex: Male
  Weight: 120 kg

DRUGS (2)
  1. SKYRIZI [Suspect]
     Active Substance: RISANKIZUMAB-RZAA
     Indication: Psoriasis
     Dosage: LAST ADMIN DATE: 2022?STRENGTH: 150 MG
     Route: 058
     Dates: start: 202206
  2. SKYRIZI [Suspect]
     Active Substance: RISANKIZUMAB-RZAA
     Dosage: STRENGTH: 150 MG
     Route: 058
     Dates: start: 20220704, end: 20231004

REACTIONS (2)
  - Bladder transitional cell carcinoma [Recovered/Resolved]
  - Nail psoriasis [Unknown]

NARRATIVE: CASE EVENT DATE: 20230509
